FAERS Safety Report 21043997 (Version 1)
Quarter: 2022Q3

REPORT INFORMATION
  Report Type: Spontaneous
  Country: US (occurrence: None)
  Receive Date: 20220702
  Receipt Date: 20220702
  Transmission Date: 20221027
  Serious: Yes (Other)
  Sender: FDA-Public Use
  Company Number: None

PATIENT
  Age: 36 Year
  Sex: Female
  Weight: 57.6 kg

DRUGS (2)
  1. AMITRIPTYLINE [Suspect]
     Active Substance: AMITRIPTYLINE
     Indication: Headache
     Dosage: FREQUENCY : AT BEDTIME;?
     Route: 048
     Dates: start: 20220110, end: 20220625
  2. ZAFEMY [Concomitant]
     Active Substance: ETHINYL ESTRADIOL\NORELGESTROMIN

REACTIONS (3)
  - Feeling abnormal [None]
  - Hormone level abnormal [None]
  - Laboratory test abnormal [None]

NARRATIVE: CASE EVENT DATE: 20220523
